FAERS Safety Report 8862491 (Version 1)
Quarter: 2012Q4

REPORT INFORMATION
  Report Type: 
  Country: US (occurrence: US)
  Receive Date: 20121026
  Receipt Date: 20121026
  Transmission Date: 20130627
  Serious: No
  Sender: FDA-Public Use
  Company Number: US-ALLERGAN-1211821US

PATIENT
  Age: 67 Year
  Sex: Female

DRUGS (9)
  1. ALPHAGAN [Suspect]
     Indication: INCREASED INTRAOCULAR PRESSURE
     Dosage: 1 Gtt, bid
     Route: 047
     Dates: start: 20120823, end: 20120823
  2. LUMIGAN [Concomitant]
     Indication: GLAUCOMA
     Dosage: 2 Gtt, qhs
     Route: 047
  3. RESTASIS� [Concomitant]
     Indication: DRY EYES
     Dosage: 2 Gtt, qd
     Route: 047
  4. REFRESH CELLUVISC SOLUTION [Concomitant]
     Indication: EYE LUBRICATION THERAPY
     Dosage: 2 Gtt, prn
     Route: 047
  5. PRILOSEC                           /00661201/ [Concomitant]
     Indication: GERD
     Dosage: UNK UNK, qod
     Route: 048
  6. ASMANEX [Concomitant]
     Indication: ASTHMA
     Dosage: UNK UNK, qd
     Route: 048
  7. PROVENTIL                          /00139501/ [Concomitant]
     Indication: ASTHMA
     Dosage: UNK UNK, prn
     Route: 048
  8. FLONASE [Concomitant]
     Indication: DRUG USE FOR UNKNOWN INDICATION
     Dosage: UNK UNK, qhs
     Route: 055
  9. NUMBING DROPS [Concomitant]
     Indication: PUNCTAL PLUG INSERTION
     Dosage: UNK
     Route: 047
     Dates: start: 20120823, end: 20120823

REACTIONS (1)
  - Miosis [Recovering/Resolving]
